FAERS Safety Report 4992772-2 (Version None)
Quarter: 2006Q1

REPORT INFORMATION
  Report Type: 
  Country: None (occurrence: None)
  Receive Date: 20060315
  Receipt Date: 20060207
  Transmission Date: 20060701
  Serious: Yes (Other)
  Sender: FDA-Public Use
  Company Number: 24599

PATIENT
  Sex: Female
  Weight: 47.1741 kg

DRUGS (5)
  1. VINORELBINE TARTRATE [Suspect]
     Indication: BREAST CANCER
     Dosage: 43 MG/IV Q WEEK FOR 3 WEEKS;1
     Route: 042
     Dates: start: 20050909
  2. GLIPIZIDE [Concomitant]
  3. XALANTIN [Concomitant]
  4. EYE DROPS [Concomitant]
  5. HYOSCYAMINE [Concomitant]

REACTIONS (2)
  - NERVOUS SYSTEM DISORDER [None]
  - RENAL DISORDER [None]
